FAERS Safety Report 24368594 (Version 1)
Quarter: 2024Q3

REPORT INFORMATION
  Report Type: Report from Study
  Country: CO (occurrence: CO)
  Receive Date: 20240926
  Receipt Date: 20240926
  Transmission Date: 20241017
  Serious: Yes (Other)
  Sender: JOHNSON AND JOHNSON
  Company Number: CO-JNJFOC-20240863706

PATIENT
  Age: 81 Year
  Sex: Male
  Weight: 78 kg

DRUGS (1)
  1. ERLEADA [Suspect]
     Active Substance: APALUTAMIDE
     Indication: Hormone-refractory prostate cancer
     Route: 048
     Dates: start: 20240609

REACTIONS (3)
  - Hypersensitivity [Not Recovered/Not Resolved]
  - Haematochezia [Not Recovered/Not Resolved]
  - Dyschezia [Not Recovered/Not Resolved]

NARRATIVE: CASE EVENT DATE: 20240801
